FAERS Safety Report 5444500-4 (Version None)
Quarter: 2007Q3

REPORT INFORMATION
  Report Type: 
  Country: None (occurrence: None)
  Receive Date: 20070827
  Receipt Date: 20070816
  Transmission Date: 20080115
  Serious: Yes (Death)
  Sender: FDA-Public Use
  Company Number: 2007328867

PATIENT
  Age: 35 Year
  Sex: Male
  Weight: 95.2554 kg

DRUGS (2)
  1. SUDAFED 12 HOUR [Suspect]
     Indication: HEADACHE
     Dosage: ORAL
     Route: 048
  2. SUDAFED 12 HOUR [Suspect]
     Indication: SINUS CONGESTION
     Dosage: ORAL
     Route: 048

REACTIONS (1)
  - DEATH [None]
